FAERS Safety Report 13712766 (Version 2)
Quarter: 2017Q3

REPORT INFORMATION
  Report Type: Spontaneous
  Country: US (occurrence: US)
  Receive Date: 20170703
  Receipt Date: 20170705
  Transmission Date: 20171127
  Serious: Yes (Death, Other)
  Sender: FDA-Public Use
  Company Number: US-ALKERMES INC.-ALK-2017-002577

PATIENT
  Sex: Male

DRUGS (1)
  1. VIVITROL [Suspect]
     Active Substance: NALTREXONE
     Indication: PRODUCT USED FOR UNKNOWN INDICATION
     Dosage: 380 MG, QMO
     Route: 030

REACTIONS (3)
  - Overdose [Fatal]
  - Hernia repair [Unknown]
  - Dependence [Not Recovered/Not Resolved]

NARRATIVE: CASE EVENT DATE: 201706
